FAERS Safety Report 19295737 (Version 1)
Quarter: 2021Q2

REPORT INFORMATION
  Report Type: Spontaneous
  Country: TW (occurrence: TW)
  Receive Date: 20210524
  Receipt Date: 20210524
  Transmission Date: 20210717
  Serious: Yes (Hospitalization)
  Sender: FDA-Public Use
  Company Number: TW-ABBVIE-21K-153-3916126-00

PATIENT
  Age: 62 Year
  Sex: Female
  Weight: 61 kg

DRUGS (14)
  1. PREDNISOLONE. [Concomitant]
     Active Substance: PREDNISOLONE
     Indication: STEROID THERAPY
     Route: 048
     Dates: start: 20210427, end: 20210502
  2. ULTRACET [Concomitant]
     Active Substance: ACETAMINOPHEN\TRAMADOL HYDROCHLORIDE
     Indication: DRUG WITHDRAWAL MAINTENANCE THERAPY
     Route: 048
     Dates: start: 20210427, end: 20210502
  3. NORVASC [Concomitant]
     Active Substance: AMLODIPINE BESYLATE
     Indication: BLOOD PRESSURE MANAGEMENT
     Route: 048
     Dates: start: 20210427, end: 20210502
  4. DIOVAN [Concomitant]
     Active Substance: VALSARTAN
     Indication: BLOOD PRESSURE MANAGEMENT
     Route: 048
     Dates: start: 20210427, end: 20210502
  5. VETERIN [Concomitant]
     Indication: ANTIBIOTIC THERAPY
     Route: 042
     Dates: start: 20210427, end: 20210501
  6. UTAPINE [Concomitant]
     Indication: PSYCHOTIC DISORDER
     Dosage: ONCE AT NIGHT
     Route: 048
     Dates: start: 20210427, end: 20210502
  7. CALCIUM ACETATE. [Concomitant]
     Active Substance: CALCIUM ACETATE
     Indication: MINERAL SUPPLEMENTATION
     Route: 048
     Dates: start: 20210427, end: 20210502
  8. BOKEY [Concomitant]
     Indication: ANTIINFLAMMATORY THERAPY
     Route: 048
     Dates: start: 20210427, end: 20210502
  9. LIPITOR [Concomitant]
     Active Substance: ATORVASTATIN CALCIUM
     Indication: LIPIDS INCREASED
     Route: 048
     Dates: start: 20210427, end: 20210502
  10. MTX [Concomitant]
     Active Substance: METHOTREXATE SODIUM
     Indication: IMMUNOSUPPRESSANT DRUG THERAPY
     Route: 048
     Dates: start: 20210427, end: 20210502
  11. HUMIRA [Suspect]
     Active Substance: ADALIMUMAB
     Indication: RHEUMATOID ARTHRITIS
     Route: 058
     Dates: start: 20110107
  12. NAPROXEN. [Concomitant]
     Active Substance: NAPROXEN
     Indication: ANTIINFLAMMATORY THERAPY
     Route: 048
     Dates: start: 20210427, end: 20210502
  13. SULCONAZOLE [Concomitant]
     Active Substance: SULCONAZOLE
     Indication: ANTIFUNGAL TREATMENT
     Dosage: 1 BOTTLE
     Route: 061
     Dates: start: 20210427, end: 20210502
  14. DEXTROSE AND SODIUM CHLORIDE [Concomitant]
     Active Substance: DEXTROSE MONOHYDRATE\SODIUM CHLORIDE
     Indication: PRODUCT USED FOR UNKNOWN INDICATION
     Dosage: 0.45% G/S
     Route: 041
     Dates: start: 20210427, end: 20210501

REACTIONS (3)
  - Product packaging issue [Unknown]
  - Joint space narrowing [Unknown]
  - Osteoarthritis [Recovered/Resolved]

NARRATIVE: CASE EVENT DATE: 202103
